FAERS Safety Report 19503488 (Version 1)
Quarter: 2021Q3

REPORT INFORMATION
  Report Type: Spontaneous
  Country: IT (occurrence: IT)
  Receive Date: 20210708
  Receipt Date: 20210708
  Transmission Date: 20211014
  Serious: Yes (Other)
  Sender: FDA-Public Use
  Company Number: IT-AMGEN-ITASP2021102714

PATIENT

DRUGS (3)
  1. ADALIMUMAB [Suspect]
     Active Substance: ADALIMUMAB
     Dosage: 40 MILLIGRAM, QWK (STARTING FROM WEEK 4)
     Route: 058
  2. ADALIMUMAB [Suspect]
     Active Substance: ADALIMUMAB
     Indication: HIDRADENITIS
     Dosage: 160 MILLIGRAM (WEEK 0)
     Route: 058
  3. ADALIMUMAB [Suspect]
     Active Substance: ADALIMUMAB
     Dosage: 80 MILLIGRAM (WEEK 2)
     Route: 058

REACTIONS (7)
  - Cardiac failure [Unknown]
  - Drug ineffective [Unknown]
  - Palmoplantar pustulosis [Unknown]
  - Hidradenitis [Unknown]
  - Bladder cancer [Unknown]
  - Acute myocardial infarction [Unknown]
  - Adverse event [Unknown]
